FAERS Safety Report 8423999-5 (Version None)
Quarter: 2012Q2

REPORT INFORMATION
  Report Type: 
  Country: None (occurrence: None)
  Receive Date: 20120608
  Receipt Date: 20120604
  Transmission Date: 20120825
  Serious: Yes (Other)
  Sender: FDA-Public Use
  Company Number: PHEH2012US011256

PATIENT
  Sex: Female

DRUGS (6)
  1. LOPRESSOR [Suspect]
  2. METOPROLOL [Suspect]
  3. LISINOPRIL [Concomitant]
     Dosage: 10 MG, QD
  4. LIPITOR [Concomitant]
     Dosage: 10 MG, QD
  5. NEXIUM [Concomitant]
     Dosage: 40 MG, QD
  6. METHYLDOPA [Concomitant]
     Dosage: 500 MG, BID

REACTIONS (1)
  - HYPERTENSION [None]
